FAERS Safety Report 17433431 (Version 1)
Quarter: 2020Q1

REPORT INFORMATION
  Report Type: Spontaneous
  Country: GB (occurrence: GB)
  Receive Date: 20200219
  Receipt Date: 20200219
  Transmission Date: 20200409
  Serious: Yes (Hospitalization)
  Sender: FDA-Public Use
  Company Number: GB-TEVA-2020-GB-1187860

PATIENT
  Sex: Female

DRUGS (2)
  1. OXYCODONE [Suspect]
     Active Substance: OXYCODONE
     Route: 065
  2. KETAMINE [Interacting]
     Active Substance: KETAMINE
     Indication: ANALGESIC THERAPY
     Dosage: 30MG
     Route: 048
     Dates: start: 20191218, end: 20191219

REACTIONS (4)
  - Myoclonus [Unknown]
  - Drug interaction [Unknown]
  - Toxicity to various agents [Unknown]
  - Acute kidney injury [Recovered/Resolved]
